FAERS Safety Report 5762651-1 (Version None)
Quarter: 2008Q2

REPORT INFORMATION
  Report Type: 
  Country: None (occurrence: None)
  Receive Date: 20080609
  Receipt Date: 20080602
  Transmission Date: 20081010
  Serious: Yes (Other)
  Sender: FDA-Public Use
  Company Number: BE-AVENTIS-200815177GDDC

PATIENT
  Age: 46 Year
  Sex: Female

DRUGS (4)
  1. ARAVA [Suspect]
     Indication: MUSCULOSKELETAL PAIN
     Route: 048
     Dates: start: 20080301, end: 20080421
  2. ARAVA [Suspect]
     Indication: SPONDYLOARTHROPATHY
     Route: 048
     Dates: start: 20080301, end: 20080421
  3. LEDERTREXATE                       /00113801/ [Concomitant]
     Indication: SPONDYLOARTHROPATHY
     Route: 048
     Dates: start: 20070417
  4. BEOFENAC [Concomitant]
     Indication: SPONDYLOARTHROPATHY
     Route: 048
     Dates: start: 20071009

REACTIONS (2)
  - LIVER DISORDER [None]
  - NAUSEA [None]
